FAERS Safety Report 7676585-9 (Version None)
Quarter: 2011Q3

REPORT INFORMATION
  Report Type: 
  Country: None (occurrence: None)
  Receive Date: 20110809
  Receipt Date: 20110809
  Transmission Date: 20111222
  Serious: Yes (Death)
  Sender: FDA-Public Use
  Company Number: None

PATIENT
  Sex: Female
  Weight: 63.4 kg

DRUGS (14)
  1. POMALIDOMIDE 2 MG CAPSULES CELGENE [Suspect]
     Indication: MULTIPLE MYELOMA
     Dosage: 4MG DAILY ORAL
     Route: 048
     Dates: start: 20110602, end: 20110730
  2. WELLBUTRIN [Concomitant]
  3. AMITIZA [Concomitant]
  4. ACYCLOVIR [Concomitant]
  5. PAMIDRONATE DISODIUM [Concomitant]
  6. IMMUNE GLOBULIN INTRAVENOUS (HUMAN) [Concomitant]
  7. LEVOTHYROXINE SODIUM [Concomitant]
  8. CLONAZEPAM [Concomitant]
  9. GABAPENTIN [Concomitant]
  10. DEXAMETHASONE TAB [Suspect]
     Indication: MULTIPLE MYELOMA
     Dosage: 40MG ONCE WEEKLY ORAL
     Route: 048
     Dates: start: 20110602, end: 20110730
  11. PREMARIN [Concomitant]
  12. LEXAPRO [Concomitant]
  13. SEROQUEL [Concomitant]
  14. ASPIRIN [Concomitant]

REACTIONS (8)
  - PARONYCHIA [None]
  - LETHARGY [None]
  - CHILLS [None]
  - ESCHERICHIA INFECTION [None]
  - PYREXIA [None]
  - HYPOTENSION [None]
  - ACIDOSIS [None]
  - LOBAR PNEUMONIA [None]
